FAERS Safety Report 5956441-4 (Version None)
Quarter: 2008Q4

REPORT INFORMATION
  Report Type: 
  Country: None (occurrence: None)
  Receive Date: 20081114
  Receipt Date: 20081114
  Transmission Date: 20090506
  Serious: Yes (Life-Threatening, Hospitalization)
  Sender: FDA-Public Use
  Company Number: None

PATIENT
  Age: 25 Year
  Sex: Male
  Weight: 68.0396 kg

DRUGS (1)
  1. PROVENTIL-HFA [Suspect]
     Indication: ASTHMA
     Dosage: 4 TIMES A DAY
     Dates: start: 20050825, end: 20060826

REACTIONS (3)
  - DRUG INEFFECTIVE [None]
  - PARADOXICAL DRUG REACTION [None]
  - PRODUCT QUALITY ISSUE [None]
